FAERS Safety Report 24877024 (Version 1)
Quarter: 2025Q1

REPORT INFORMATION
  Report Type: Spontaneous
  Country: US (occurrence: US)
  Receive Date: 20250123
  Receipt Date: 20250123
  Transmission Date: 20250409
  Serious: No
  Sender: ROCHE
  Company Number: US-ROCHE-10000186249

PATIENT
  Sex: Male

DRUGS (9)
  1. XOLAIR PFS [Suspect]
     Active Substance: OMALIZUMAB
     Indication: Cough variant asthma
     Route: 058
  2. XOLAIR PFS [Suspect]
     Active Substance: OMALIZUMAB
  3. ALBUTEROL SU NEB [Concomitant]
  4. ALLEGRA ALLE [Concomitant]
  5. BENADRYL ALL [Concomitant]
  6. BENZONATATE [Concomitant]
     Active Substance: BENZONATATE
  7. CLOBETASOL P [Concomitant]
  8. GUAIFENESIN-SOL [Concomitant]
  9. TRIAMCINOLON [Concomitant]

REACTIONS (1)
  - Heart rate irregular [Not Recovered/Not Resolved]
